FAERS Safety Report 4520017-6 (Version None)
Quarter: 2004Q4

REPORT INFORMATION
  Report Type: 
  Country: None (occurrence: None)
  Receive Date: 20041201
  Receipt Date: 20041201
  Transmission Date: 20050328
  Serious: Yes (Life-Threatening, Hospitalization)
  Sender: FDA-Public Use
  Company Number: None

PATIENT
  Sex: Female

DRUGS (7)
  1. SULFAMETHOXAZOLE + TRIMETHOPRIM [Suspect]
     Indication: HEPATIC NECROSIS
     Dates: start: 20041001, end: 20041001
  2. SULFAMETHOXAZOLE + TRIMETHOPRIM [Suspect]
     Indication: HEPATITIS ACUTE
     Dates: start: 20041001, end: 20041001
  3. NASONEX [Concomitant]
  4. MONTELUKAST [Concomitant]
  5. DESLORATIDINE [Concomitant]
  6. M.V.I. [Concomitant]
  7. ALBUTEROL [Concomitant]

REACTIONS (4)
  - CONDITION AGGRAVATED [None]
  - HAEMATURIA [None]
  - HEPATIC NECROSIS [None]
  - HEPATITIS [None]
